FAERS Safety Report 7712506 (Version 4)
Quarter: 2020Q3

REPORT INFORMATION
  Report Type: Report from Study
  Country: US (occurrence: US)
  Receive Date: 20101215
  Receipt Date: 20110427
  Transmission Date: 20201105
  Serious: Yes (Hospitalization)
  Sender: FDA-Public Use
  Company Number: US-PFIZER INC-2010164921

PATIENT
  Age: 56 Year
  Sex: Female
  Weight: 55 kg

DRUGS (17)
  1. FOLIC ACID. [Concomitant]
     Active Substance: FOLIC ACID
     Dosage: 1 MG, 1X/DAY
     Route: 048
  2. HYDROCODONE [Concomitant]
     Active Substance: HYDROCODONE
     Indication: PAIN
     Dosage: 5/500 AS NEEDED
     Route: 048
  3. AMOXICILLIN AND CLAVULANATE POTASSIUM [Concomitant]
     Active Substance: AMOXICILLIN\CLAVULANATE POTASSIUM
     Indication: INFECTION PROPHYLAXIS
     Dosage: 875/125 MG, 2X/DAY
     Route: 048
  4. DIPHENHYDRAMINE HYDROCHLORIDE\PHENYLEPHRINE HYDROCHLORIDE [Concomitant]
     Active Substance: DIPHENHYDRAMINE HYDROCHLORIDE\PHENYLEPHRINE HYDROCHLORIDE
     Dosage: 50 MG, AS NEEDED
     Route: 048
  5. SELUMETINIB. [Suspect]
     Active Substance: SELUMETINIB
     Dosage: 50 MG 2X/DAY
     Route: 048
     Dates: start: 20101015, end: 20101101
  6. LIDOCAINE. [Concomitant]
     Active Substance: LIDOCAINE
     Dosage: UNK
  7. CIMETIDINE. [Concomitant]
     Active Substance: CIMETIDINE
     Dosage: 300 MG, AS NEEDED
     Route: 048
  8. HEPARIN SODIUM. [Concomitant]
     Active Substance: HEPARIN SODIUM
     Dosage: 500 U, WEEKLY WITH CHEMO
     Route: 042
  9. TORISEL [Suspect]
     Active Substance: TEMSIROLIMUS
     Indication: LEIOMYOSARCOMA METASTATIC
     Dosage: 25 MG, CYCLIC, OVER 30?60MIN ON DAYS 1, 8, 15, AND 22
     Route: 042
     Dates: start: 20101015, end: 20101029
  10. TORISEL [Suspect]
     Active Substance: TEMSIROLIMUS
     Indication: UTERINE LEIOMYOSARCOMA
  11. LORAZEPAM. [Concomitant]
     Active Substance: LORAZEPAM
     Dosage: UNK MG, UNK
     Route: 048
  12. PREDNISONE. [Concomitant]
     Active Substance: PREDNISONE
     Indication: RHEUMATOID ARTHRITIS
     Dosage: 7 MG, 1X/DAY
     Route: 048
  13. PREDNISONE. [Concomitant]
     Active Substance: PREDNISONE
     Dosage: 20 MG, AS NEEDED CT SCAN
  14. ZOMETA [Concomitant]
     Active Substance: ZOLEDRONIC ACID
     Dosage: 40 MG, SINGLE
     Route: 042
  15. PREVACID [Concomitant]
     Active Substance: LANSOPRAZOLE
     Dosage: UNK
  16. AMBIEN [Concomitant]
     Active Substance: ZOLPIDEM TARTRATE
     Dosage: UNK MG, UNK
     Route: 048
  17. DIPHENHYDRAMINE HYDROCHLORIDE\LIDOCAINE HYDROCHLORIDE\MAGNESIUM HYDROXIDE [Concomitant]
     Active Substance: DIPHENHYDRAMINE HYDROCHLORIDE\LIDOCAINE HYDROCHLORIDE\MAGNESIUM HYDROXIDE
     Indication: MUCOSAL INFLAMMATION
     Dosage: UNK DOSE AS NEEDED
     Route: 061

REACTIONS (6)
  - Headache [Unknown]
  - Coordination abnormal [Unknown]
  - Hypertension [Recovered/Resolved]
  - Muscular weakness [Unknown]
  - Hypoaesthesia [Recovered/Resolved]
  - Visual impairment [Unknown]

NARRATIVE: CASE EVENT DATE: 20101101
